FAERS Safety Report 4523836-5 (Version None)
Quarter: 2004Q4

REPORT INFORMATION
  Report Type: 
  Country: None (occurrence: None)
  Receive Date: 20041101
  Receipt Date: 20040721
  Transmission Date: 20050328
  Serious: Yes (Other)
  Sender: FDA-Public Use
  Company Number: 200419299BWH

PATIENT
  Age: 72 Year
  Sex: Female
  Weight: 90.7194 kg

DRUGS (4)
  1. CIPRO XR [Suspect]
     Indication: URINARY TRACT INFECTION
     Dosage: 500 MG, QD, ORAL
     Route: 048
     Dates: start: 20040618, end: 20040622
  2. SYNTHROID [Concomitant]
  3. ZOCOR [Concomitant]
  4. PAXIL [Concomitant]

REACTIONS (25)
  - ANOREXIA [None]
  - ASTHENIA [None]
  - DIFFICULTY IN WALKING [None]
  - DISTURBANCE IN ATTENTION [None]
  - DIZZINESS [None]
  - DYSGEUSIA [None]
  - EYE SWELLING [None]
  - FATIGUE [None]
  - FEELING ABNORMAL [None]
  - HYPERSENSITIVITY [None]
  - LOCALISED EXFOLIATION [None]
  - MYALGIA [None]
  - NAUSEA [None]
  - OEDEMA MOUTH [None]
  - PALLOR [None]
  - PHARYNGOLARYNGEAL PAIN [None]
  - PRURITUS [None]
  - PYREXIA [None]
  - RASH [None]
  - RASH GENERALISED [None]
  - RASH MACULO-PAPULAR [None]
  - SKIN TIGHTNESS [None]
  - SWELLING [None]
  - SWELLING FACE [None]
  - VISION BLURRED [None]
